FAERS Safety Report 6576110-X (Version None)
Quarter: 2010Q1

REPORT INFORMATION
  Report Type: 
  Country: None (occurrence: None)
  Receive Date: 20100209
  Receipt Date: 20100205
  Transmission Date: 20100710
  Serious: Yes (Death)
  Sender: FDA-Public Use
  Company Number: US-CELGENEUS-163-21880-10020546

PATIENT
  Sex: Female

DRUGS (3)
  1. REVLIMID [Suspect]
     Indication: MULTIPLE MYELOMA
     Route: 048
     Dates: start: 20090601
  2. REVLIMID [Suspect]
     Route: 048
     Dates: start: 20080301, end: 20090101
  3. REVLIMID [Suspect]
     Route: 048
     Dates: start: 20070101, end: 20080101

REACTIONS (1)
  - CEREBROVASCULAR ACCIDENT [None]
